FAERS Safety Report 19706996 (Version 1)
Quarter: 2021Q3

REPORT INFORMATION
  Report Type: Spontaneous
  Country: IR (occurrence: IR)
  Receive Date: 20210817
  Receipt Date: 20210817
  Transmission Date: 20211014
  Serious: Yes (Other)
  Sender: FDA-Public Use
  Company Number: IR-LUPIN PHARMACEUTICALS INC.-2021-14722

PATIENT
  Age: 22 Year
  Sex: Female

DRUGS (8)
  1. HYDROXYCHLOROQUINE [Suspect]
     Active Substance: HYDROXYCHLOROQUINE
     Indication: COVID-19 PNEUMONIA
     Dosage: 400 MILLIGRAM, QD
     Route: 065
     Dates: start: 202003, end: 202003
  2. KALETRA [Suspect]
     Active Substance: LOPINAVIR\RITONAVIR
     Indication: COVID-19 PNEUMONIA
     Dosage: 200 MILLIGRAM DAILY
     Route: 048
     Dates: start: 202003, end: 202003
  3. OSELTAMIVIR [Suspect]
     Active Substance: OSELTAMIVIR
     Indication: COVID-19 PNEUMONIA
     Dosage: 400 MILLIGRAM, BID (EVERY 12 HOURS)
     Route: 048
     Dates: start: 202003, end: 202003
  4. CEFTRIAXONE. [Suspect]
     Active Substance: CEFTRIAXONE
     Indication: COVID-19 PNEUMONIA
     Dosage: 1000 MILLIGRAM, BID (EVERY 12 HOURS)
     Route: 065
     Dates: start: 202003, end: 202003
  5. LEVOTHYROXINE. [Suspect]
     Active Substance: LEVOTHYROXINE
     Indication: HYPOTHYROIDISM
     Dosage: 100 MICROGRAM, QD
     Route: 065
     Dates: start: 202003, end: 202003
  6. ACETAMINOPHEN. [Suspect]
     Active Substance: ACETAMINOPHEN
     Indication: COVID-19 PNEUMONIA
     Dosage: UNK
     Route: 065
     Dates: start: 202003, end: 202003
  7. AZITHROMYCIN ANHYDROUS. [Suspect]
     Active Substance: AZITHROMYCIN ANHYDROUS
     Dosage: 500 MILLIGRAM, BID (EVERY 12 HOURS)
     Route: 042
     Dates: start: 202003
  8. AZITHROMYCIN ANHYDROUS. [Suspect]
     Active Substance: AZITHROMYCIN ANHYDROUS
     Indication: COVID-19 PNEUMONIA
     Dosage: UNK
     Route: 048
     Dates: start: 202003, end: 202003

REACTIONS (3)
  - Off label use [Unknown]
  - Maternal exposure during pregnancy [Unknown]
  - Premature delivery [Unknown]

NARRATIVE: CASE EVENT DATE: 202003
